FAERS Safety Report 8569493-2 (Version None)
Quarter: 2012Q3

REPORT INFORMATION
  Report Type: 
  Country: None (occurrence: None)
  Receive Date: 20120803
  Receipt Date: 20120606
  Transmission Date: 20120928
  Serious: No
  Sender: FDA-Public Use
  Company Number: US-ABBOTT-12P-163-0943409-00

PATIENT
  Sex: Female
  Weight: 58.112 kg

DRUGS (4)
  1. FISH OIL [Concomitant]
     Indication: PRODUCT USED FOR UNKNOWN INDICATION
  2. MVT [Concomitant]
     Indication: PRODUCT USED FOR UNKNOWN INDICATION
  3. TOE OINTMENT [Concomitant]
     Indication: PRODUCT USED FOR UNKNOWN INDICATION
  4. NIASPAN [Suspect]
     Indication: ILL-DEFINED DISORDER
     Dosage: AT LUNCH, MANUFACTURER SUGGESTED NIASPAN AT BEDTIM
     Dates: start: 20120605

REACTIONS (1)
  - FLUSHING [None]
